FAERS Safety Report 14485622 (Version 2)
Quarter: 2018Q1

REPORT INFORMATION
  Report Type: Spontaneous
  Country: JP (occurrence: JP)
  Receive Date: 20180205
  Receipt Date: 20180227
  Transmission Date: 20180509
  Serious: Yes (Hospitalization, Other)
  Sender: FDA-Public Use
  Company Number: JP-PFIZER INC-2018044332

PATIENT
  Age: 49 Year
  Sex: Female

DRUGS (1)
  1. AMLODIPINE BESILATE [Suspect]
     Active Substance: AMLODIPINE BESYLATE
     Dosage: 535 MG, DAILY
     Route: 048

REACTIONS (4)
  - Hypotension [Recovering/Resolving]
  - Renal impairment [Recovering/Resolving]
  - Overdose [Unknown]
  - Altered state of consciousness [Recovering/Resolving]
